FAERS Safety Report 5826000-2 (Version None)
Quarter: 2008Q3

REPORT INFORMATION
  Report Type: 
  Country: None (occurrence: None)
  Receive Date: 20080729
  Receipt Date: 20080717
  Transmission Date: 20090109
  Serious: Yes (Hospitalization)
  Sender: FDA-Public Use
  Company Number: CA-ROCHE-541678

PATIENT
  Sex: Male
  Weight: 84.2 kg

DRUGS (10)
  1. PEGASYS [Suspect]
     Dosage: DOSE UNBLINDED AFTER 12 WEEKS. DOSAGE FORM REPORTED AS VIALS.
     Route: 058
     Dates: start: 20070427, end: 20070810
  2. PEGASYS [Suspect]
     Dosage: DOSAGE FORM REPORTED AS VIAL DRUG PERMANENTLY DISCONTINUED ON 11 JANUARY 2008.
     Route: 058
     Dates: start: 20070817, end: 20071228
  3. RIBAVIRIN [Suspect]
     Dosage: DOSE BLINDED.
     Route: 048
     Dates: start: 20070427, end: 20070806
  4. RIBAVIRIN [Suspect]
     Dosage: DRUG PERMANENTLY DISCONTINUED ON 09 JANUARY 2008.
     Route: 048
     Dates: start: 20070814, end: 20080103
  5. HALCION [Concomitant]
     Dates: start: 19970101
  6. ASCORBIC ACID [Concomitant]
     Dates: start: 19950101
  7. MULTI-VITAMIN [Concomitant]
     Dates: start: 19950101
  8. VENLAFAXINE HCL [Concomitant]
     Dates: start: 20070710
  9. PERCOCET [Concomitant]
     Dates: start: 20070813
  10. OXYCONTIN [Concomitant]
     Dates: start: 20071215

REACTIONS (1)
  - OVERDOSE [None]
